FAERS Safety Report 8060887-0 (Version None)
Quarter: 2012Q1

REPORT INFORMATION
  Report Type: 
  Country: None (occurrence: None)
  Receive Date: 20120120
  Receipt Date: 20110301
  Transmission Date: 20120608
  Serious: No
  Sender: FDA-Public Use
  Company Number: US-ALLERGAN-1102910US

PATIENT
  Age: 70 Year
  Sex: Female

DRUGS (4)
  1. RESTASIS [Suspect]
     Indication: DRY EYE
     Dosage: 1 GTT, BID
     Route: 047
  2. 3 TO 4 BLOOD PRESSURE MEDICATIONS [Concomitant]
     Indication: HYPERTENSION
     Dosage: UNK
  3. BLINK                              /00582501/ [Concomitant]
     Indication: DRY EYE
     Dosage: UNK
  4. XALATAN [Concomitant]
     Indication: GLAUCOMA
     Dosage: UNK

REACTIONS (5)
  - FOREIGN BODY SENSATION IN EYES [None]
  - BLOOD PRESSURE INCREASED [None]
  - EYE DISCHARGE [None]
  - VISUAL IMPAIRMENT [None]
  - EYE PAIN [None]
